FAERS Safety Report 8086572-7 (Version None)
Quarter: 2012Q1

REPORT INFORMATION
  Report Type: 
  Country: None (occurrence: None)
  Receive Date: 20120128
  Receipt Date: 20110511
  Transmission Date: 20120608
  Serious: Yes (Other)
  Sender: FDA-Public Use
  Company Number: US-ABBOTT-11P-163-0725042-00

PATIENT
  Sex: Female
  Weight: 47.67 kg

DRUGS (1)
  1. HUMIRA [Suspect]
     Indication: RHEUMATOID ARTHRITIS
     Route: 058
     Dates: end: 20100301

REACTIONS (12)
  - FALL [None]
  - RIB FRACTURE [None]
  - HYPERKERATOSIS [None]
  - HAND FRACTURE [None]
  - HYPOAESTHESIA ORAL [None]
  - JOINT INJURY [None]
  - DERMAL CYST [None]
  - NAUSEA [None]
  - INFECTED CYST [None]
  - RHEUMATOID ARTHRITIS [None]
  - HYPOAESTHESIA [None]
  - WEIGHT DECREASED [None]
